FAERS Safety Report 5182808-0 (Version None)
Quarter: 2006Q4

REPORT INFORMATION
  Report Type: 
  Country: None (occurrence: None)
  Receive Date: 20061220
  Receipt Date: 20051116
  Transmission Date: 20070319
  Serious: No
  Sender: FDA-Public Use
  Company Number: US-GLAXOSMITHKLINE-A0582525A

PATIENT
  Age: 42 Year

DRUGS (1)
  1. NICODERM CQ [Suspect]

REACTIONS (4)
  - APPLICATION SITE IRRITATION [None]
  - APPLICATION SITE PAIN [None]
  - APPLICATION SITE PARAESTHESIA [None]
  - DRUG INEFFECTIVE [None]
